FAERS Safety Report 4953775-7 (Version None)
Quarter: 2006Q1

REPORT INFORMATION
  Report Type: 
  Country: None (occurrence: None)
  Receive Date: 20060321
  Receipt Date: 20060316
  Transmission Date: 20060701
  Serious: Yes (Life-Threatening)
  Sender: FDA-Public Use
  Company Number: HYPQ-PR-0603S-0001

PATIENT
  Age: 75 Year
  Sex: Female
  Weight: 63.9572 kg

DRUGS (1)
  1. HYPAQUE [Suspect]
     Indication: CATHETER PLACEMENT
     Dosage: 1 ML, SINGLE DOSE, I.T.
     Route: 038
     Dates: start: 20060309, end: 20060309

REACTIONS (5)
  - ANXIETY [None]
  - BRAIN OEDEMA [None]
  - CONVULSION [None]
  - INCORRECT ROUTE OF DRUG ADMINISTRATION [None]
  - MYOCARDIAL INFARCTION [None]
